FAERS Safety Report 7049027-4 (Version None)
Quarter: 2010Q4

REPORT INFORMATION
  Report Type: 
  Country: None (occurrence: None)
  Receive Date: 20101018
  Receipt Date: 20101007
  Transmission Date: 20110411
  Serious: Yes (Hospitalization)
  Sender: FDA-Public Use
  Company Number: JP-ASTRAZENECA-2009SE05257

PATIENT
  Age: 24676 Day
  Sex: Female
  Weight: 50 kg

DRUGS (4)
  1. OMEPRAL [Suspect]
     Indication: GASTRIC ULCER
     Route: 048
     Dates: start: 20090601, end: 20090617
  2. RIZABEN [Suspect]
     Indication: RHINITIS ALLERGIC
     Route: 048
     Dates: start: 20090601, end: 20090617
  3. URITOS [Suspect]
     Indication: POLLAKIURIA
     Route: 048
     Dates: start: 20090601, end: 20090617
  4. BIOFERMIN [Suspect]
     Indication: DIARRHOEA
     Route: 048
     Dates: start: 20090601, end: 20090617

REACTIONS (2)
  - HEPATIC FUNCTION ABNORMAL [None]
  - HEPATITIS [None]
